FAERS Safety Report 16201475 (Version 1)
Quarter: 2019Q2

REPORT INFORMATION
  Report Type: Spontaneous
  Country: US (occurrence: US)
  Receive Date: 20190312
  Receipt Date: 20190312
  Transmission Date: 20190711
  Serious: No
  Sender: FDA-Public Use
  Company Number: None

PATIENT
  Age: 74 Year
  Sex: Male
  Weight: 81.65 kg

DRUGS (5)
  1. DORZOLOMIDE [Suspect]
     Active Substance: DORZOLAMIDE
  2. 81 ASPIRIN [Concomitant]
  3. LATAMAPROST [Concomitant]
  4. METOROPLOL [Concomitant]
  5. RHOPRESSA [Suspect]
     Active Substance: NETARSUDIL MESYLATE
     Indication: HYPERTENSION
     Dosage: ?          QUANTITY:1 GTT DROP(S);OTHER FREQUENCY:1 DROP/DAY BEDTIME;OTHER ROUTE:1 DROP IN EACH EYE /DAY?
     Dates: start: 20190221, end: 20190222

REACTIONS (3)
  - Skin irritation [None]
  - Rash [None]
  - Urticaria [None]

NARRATIVE: CASE EVENT DATE: 20190224
